FAERS Safety Report 8942354 (Version 2)
Quarter: 2012Q4

REPORT INFORMATION
  Report Type: Spontaneous
  Country: US (occurrence: None)
  Receive Date: 20121123
  Receipt Date: 20121221
  Transmission Date: 20130627
  Serious: Yes (Death)
  Sender: FDA-Public Use
  Company Number: UTC-025639

PATIENT
  Age: 64 Year
  Sex: Male
  Weight: 66.36 kg

DRUGS (1)
  1. REMODULIN [Suspect]
     Indication: PRIMARY PULMONARY HYPERTENSION
     Dosage: 25.92 ug/kg (0.018 ug/kg,1 in 1 min), Intravenous drip
     Route: 041
     Dates: start: 20120921, end: 20121112

REACTIONS (3)
  - Wrong technique in drug usage process [None]
  - Inappropriate schedule of drug administration [None]
  - Fall [None]
